FAERS Safety Report 7411465-5 (Version None)
Quarter: 2011Q2

REPORT INFORMATION
  Report Type: 
  Country: None (occurrence: None)
  Receive Date: 20110413
  Receipt Date: 20110401
  Transmission Date: 20111010
  Serious: Yes (Hospitalization)
  Sender: FDA-Public Use
  Company Number: PHFR2011GB02315

PATIENT
  Sex: Female

DRUGS (2)
  1. CLOZARIL [Suspect]
     Indication: SCHIZOPHRENIA
     Dosage: UNK DF
     Route: 048
     Dates: start: 20040604, end: 20101101
  2. CLOZARIL [Suspect]
     Dosage: 450 MG, QD
     Route: 048

REACTIONS (5)
  - UNRESPONSIVE TO STIMULI [None]
  - URINARY INCONTINENCE [None]
  - MUSCLE RIGIDITY [None]
  - APHASIA [None]
  - TACHYCARDIA [None]
